FAERS Safety Report 13585663 (Version 1)
Quarter: 2017Q2

REPORT INFORMATION
  Report Type: Spontaneous
  Country: JP (occurrence: JP)
  Receive Date: 20170526
  Receipt Date: 20170526
  Transmission Date: 20170830
  Serious: Yes (Death, Life-Threatening, Hospitalization, Other)
  Sender: FDA-Public Use
  Company Number: JP-JNJFOC-20170522891

PATIENT
  Age: 79 Year
  Sex: Male

DRUGS (1)
  1. LEVOFLOXACIN. [Suspect]
     Active Substance: LEVOFLOXACIN
     Indication: INFLAMMATION
     Dosage: INTERMITTENTLY RECEIVED MULTIPLE 2-WEEK COURSES OF LEVOFLOXACIN
     Route: 058

REACTIONS (10)
  - Product use in unapproved indication [Unknown]
  - Candida endophthalmitis [Fatal]
  - Graft infection [Fatal]
  - Off label use [Unknown]
  - Carotid artery thrombosis [Unknown]
  - Peripheral artery thrombosis [Unknown]
  - Venous thrombosis limb [Unknown]
  - Anaemia [Unknown]
  - Hepatic enzyme increased [Unknown]
  - Cerebral artery embolism [Fatal]
